FAERS Safety Report 6547313-5 (Version None)
Quarter: 2010Q1

REPORT INFORMATION
  Report Type: 
  Country: None (occurrence: None)
  Receive Date: 20100122
  Receipt Date: 20100107
  Transmission Date: 20100710
  Serious: Yes (Life-Threatening, Hospitalization)
  Sender: FDA-Public Use
  Company Number: AU-WYE-G05289510

PATIENT
  Sex: Male

DRUGS (6)
  1. EFFEXOR XR [Interacting]
     Dosage: 300MG IN 1 DAY
  2. ELEVIT [Concomitant]
  3. ZOLOFT [Interacting]
     Dosage: 50MG IN 1 DAY
  4. FOLIC ACID [Concomitant]
  5. HALOPERIDOL [Suspect]
     Dosage: 7.5MG TO 12.5MG DAILY ONCE A DAY
  6. QUETIAPINE [Interacting]
     Dosage: 1 IN 1 DAY

REACTIONS (9)
  - DRUG INTERACTION [None]
  - DRUG WITHDRAWAL SYNDROME NEONATAL [None]
  - FEEDING DISORDER NEONATAL [None]
  - IRRITABILITY [None]
  - JAUNDICE NEONATAL [None]
  - NEONATAL RESPIRATORY DISTRESS SYNDROME [None]
  - NEONATAL RESPIRATORY FAILURE [None]
  - PREMATURE BABY [None]
  - TREMOR NEONATAL [None]
